FAERS Safety Report 8036130-5 (Version None)
Quarter: 2011Q4

REPORT INFORMATION
  Report Type: 
  Country: None (occurrence: None)
  Receive Date: 20111202
  Receipt Date: 20110818
  Transmission Date: 20120403
  Serious: No
  Sender: FDA-Public Use
  Company Number: PHEH2011US02113

PATIENT
  Age: 42 Year
  Sex: Female

DRUGS (2)
  1. LAMICTAL [Concomitant]
  2. FANAPT [Suspect]
     Indication: BIPOLAR DISORDER
     Dosage: 2 MG, BID, ORAL
     Route: 048
     Dates: start: 20110817

REACTIONS (2)
  - DISCOMFORT [None]
  - DIZZINESS [None]
